FAERS Safety Report 8799031 (Version 2)
Quarter: 2012Q4

REPORT INFORMATION
  Report Type: Report from Study
  Country: US (occurrence: GB)
  Receive Date: 20120920
  Receipt Date: 20121207
  Transmission Date: 20130627
  Serious: Yes (Death, Congenital Anomaly)
  Sender: FDA-Public Use
  Company Number: US-ABBOTT-10P-167-0632385-00

PATIENT
  Sex: Female

DRUGS (6)
  1. RITONAVIR SOFT GELATIN CAPSULES [Suspect]
     Indication: MATERNAL EXPOSURE TIMING UNSPECIFIED
     Route: 064
  2. DARUNAVIR [Suspect]
     Indication: MATERNAL EXPOSURE TIMING UNSPECIFIED
     Route: 064
  3. ZIDOVUDINE [Suspect]
     Indication: MATERNAL EXPOSURE TIMING UNSPECIFIED
     Route: 064
  4. TRUVADA [Suspect]
     Indication: MATERNAL EXPOSURE TIMING UNSPECIFIED
     Route: 064
  5. ISENTRESS [Suspect]
     Indication: MATERNAL EXPOSURE TIMING UNSPECIFIED
     Route: 064
  6. PREZISTA [Suspect]
     Indication: MATERNAL EXPOSURE TIMING UNSPECIFIED
     Route: 064

REACTIONS (14)
  - Congenital heart valve disorder [Unknown]
  - Cardiac murmur [Unknown]
  - Ventricular hypertrophy [Unknown]
  - Congenital heart valve disorder [Unknown]
  - Neonatal respiratory arrest [Fatal]
  - Sudden infant death syndrome [Fatal]
  - Foetal exposure during pregnancy [Unknown]
  - Cardiac arrest [Fatal]
  - Large for dates baby [Unknown]
  - Pulmonary valve sclerosis [Fatal]
  - Aortic valve sclerosis [Fatal]
  - Congenital pulmonary valve disorder [Fatal]
  - Maternal drugs affecting foetus [Fatal]
  - Complication of delivery [Unknown]
